FAERS Safety Report 4615898-1 (Version None)
Quarter: 2005Q1

REPORT INFORMATION
  Report Type: 
  Country: None (occurrence: None)
  Receive Date: 20050318
  Receipt Date: 20050308
  Transmission Date: 20050727
  Serious: Yes (Hospitalization)
  Sender: FDA-Public Use
  Company Number: 2005036946

PATIENT
  Age: 45 Year
  Sex: Female

DRUGS (9)
  1. ZYRTEC [Suspect]
     Indication: ILL-DEFINED DISORDER
     Dosage: 10 MG, ORAL
     Route: 048
  2. KETOPROFEN [Suspect]
     Indication: ILL-DEFINED DISORDER
     Dosage: 200 MG, ORAL
     Route: 048
     Dates: end: 20041112
  3. LANSOPRAZOLE [Suspect]
     Indication: ILL-DEFINED DISORDER
     Dosage: 1 DOSAGE FORM, ORAL
     Route: 048
  4. CANDESARTAN CILEXETIL (CANDESARTAN CILEXETIL) [Suspect]
     Indication: ILL-DEFINED DISORDER
     Dosage: 16 MG, ORAL
     Route: 048
  5. LEFLUNOMIDE [Suspect]
     Indication: ILL-DEFINED DISORDER
     Dosage: 20 MG, ORAL
     Route: 048
     Dates: end: 20041018
  6. ACETAMINOPHEN [Suspect]
     Indication: ILL-DEFINED DISORDER
     Dosage: 2 GRAM, ORAL
     Route: 048
  7. FERRO-FOLSAN (FERROUS SULFATE, FOLIC ACID) [Concomitant]
  8. ENDOTELON (HERBAL EXTRACTS NOS, VITIS VINIFERA) [Concomitant]
  9. MOMETASONE FUROATE [Concomitant]

REACTIONS (13)
  - ANAL SPHINCTER ATONY [None]
  - BLOOD CHLORIDE DECREASED [None]
  - BLOOD GLUCOSE INCREASED [None]
  - BLOOD POTASSIUM DECREASED [None]
  - COLITIS [None]
  - DIARRHOEA [None]
  - HEPATIC STEATOSIS [None]
  - INTESTINAL MASS [None]
  - MICROCYTIC ANAEMIA [None]
  - PANCREATITIS [None]
  - PCO2 INCREASED [None]
  - PROCTOCOLITIS [None]
  - WEIGHT DECREASED [None]
